FAERS Safety Report 14855949 (Version 2)
Quarter: 2018Q2

REPORT INFORMATION
  Report Type: Report from Study
  Country: US (occurrence: US)
  Receive Date: 20180507
  Receipt Date: 20180601
  Transmission Date: 20180711
  Serious: Yes (Death, Hospitalization)
  Sender: FDA-Public Use
  Company Number: US-ACTELION-A-US2018-171511

PATIENT
  Age: 42 Year
  Sex: Female
  Weight: 67.12 kg

DRUGS (4)
  1. UPTRAVI [Suspect]
     Active Substance: SELEXIPAG
     Indication: PULMONARY HYPERTENSION
     Dosage: 600 MCG, BID
     Route: 048
  2. REVATIO [Concomitant]
     Active Substance: SILDENAFIL CITRATE
     Dosage: 60 MG, TID
  3. WARFARIN [Concomitant]
     Active Substance: WARFARIN
  4. LETAIRIS [Concomitant]
     Active Substance: AMBRISENTAN
     Dosage: 10 MG, QD
     Route: 048

REACTIONS (5)
  - Unresponsive to stimuli [Unknown]
  - Cardio-respiratory arrest [Fatal]
  - Nodal rhythm [Unknown]
  - Resuscitation [Fatal]
  - Nodal arrhythmia [Unknown]
